FAERS Safety Report 6261772-7 (Version None)
Quarter: 2009Q3

REPORT INFORMATION
  Report Type: 
  Country: None (occurrence: None)
  Receive Date: 20090709
  Receipt Date: 20090708
  Transmission Date: 20100115
  Serious: Yes (Hospitalization)
  Sender: FDA-Public Use
  Company Number: GB-SP-2009-02599

PATIENT
  Age: 76 Year
  Sex: Male

DRUGS (1)
  1. IMMUCYST [Suspect]
     Indication: BLADDER CANCER
     Route: 043
     Dates: start: 20080501, end: 20090101

REACTIONS (5)
  - BOVINE TUBERCULOSIS [None]
  - CHILLS [None]
  - NIGHT SWEATS [None]
  - PYREXIA [None]
  - VOMITING [None]
